FAERS Safety Report 22177788 (Version 6)
Quarter: 2023Q2

REPORT INFORMATION
  Report Type: Report from Study
  Country: ES (occurrence: ES)
  Receive Date: 20230405
  Receipt Date: 20230606
  Transmission Date: 20230722
  Serious: Yes (Hospitalization, Other)
  Sender: FDA-Public Use
  Company Number: ES-ABBVIE-4716314

PATIENT
  Age: 73 Year
  Sex: Male

DRUGS (2)
  1. CARBIDOPA\LEVODOPA [Suspect]
     Active Substance: CARBIDOPA\LEVODOPA
     Indication: Parkinson^s disease
     Route: 050
     Dates: start: 20220920, end: 2023
  2. CARBIDOPA\LEVODOPA [Suspect]
     Active Substance: CARBIDOPA\LEVODOPA
     Dosage: MORNING DOSE 7 ML, CONTINUOUS DOSE 3 ML/H, EXTRA DOSE 3 ML.
     Route: 050
     Dates: start: 2023

REACTIONS (15)
  - Loss of consciousness [Recovered/Resolved]
  - Syncope [Recovered/Resolved]
  - Hepatic infection [Not Recovered/Not Resolved]
  - Fall [Unknown]
  - Device issue [Recovered/Resolved]
  - Muscle atrophy [Unknown]
  - Grip strength decreased [Unknown]
  - Fall [Recovered/Resolved]
  - Pyrexia [Recovered/Resolved]
  - Liver abscess [Unknown]
  - Loss of consciousness [Unknown]
  - Device issue [Unknown]
  - Product packaging difficult to open [Unknown]
  - Sepsis [Unknown]
  - Mobility decreased [Unknown]

NARRATIVE: CASE EVENT DATE: 20221201
